FAERS Safety Report 19590194 (Version 1)
Quarter: 2021Q3

REPORT INFORMATION
  Report Type: Spontaneous
  Country: US (occurrence: US)
  Receive Date: 20210721
  Receipt Date: 20210721
  Transmission Date: 20211014
  Serious: No
  Sender: FDA-Public Use
  Company Number: US-ELI_LILLY_AND_COMPANY-US202107005608

PATIENT
  Sex: Female

DRUGS (3)
  1. TRESIBA [Concomitant]
     Active Substance: INSULIN DEGLUDEC
     Indication: TYPE 2 DIABETES MELLITUS
     Dosage: 16 U, EACH EVENING (AT NIGHT)
  2. TRULICITY [Suspect]
     Active Substance: DULAGLUTIDE
     Indication: TYPE 2 DIABETES MELLITUS
     Dosage: 1.5 MG, WEEKLY (1/W)
     Route: 058
     Dates: start: 2021
  3. TRULICITY [Suspect]
     Active Substance: DULAGLUTIDE
     Dosage: 3 MG, WEEKLY (1/W)
     Route: 058

REACTIONS (10)
  - Insomnia [Unknown]
  - Injection site pain [Unknown]
  - Diarrhoea [Unknown]
  - Weight decreased [Unknown]
  - Tremor [Unknown]
  - Decreased appetite [Unknown]
  - Blood glucose decreased [Unknown]
  - Fatigue [Unknown]
  - Dry mouth [Unknown]
  - Thirst [Unknown]

NARRATIVE: CASE EVENT DATE: 2021
